FAERS Safety Report 24323831 (Version 1)
Quarter: 2024Q3

REPORT INFORMATION
  Report Type: Spontaneous
  Country: US (occurrence: US)
  Receive Date: 20240916
  Receipt Date: 20240916
  Transmission Date: 20241017
  Serious: Yes (Hospitalization, Other)
  Sender: EPIC PHARM
  Company Number: US-EPICPHARMA-US-2024EPCLIT01100

PATIENT
  Age: 50 Year
  Sex: Male

DRUGS (1)
  1. MORPHINE SULFATE [Suspect]
     Active Substance: MORPHINE SULFATE
     Indication: Product used for unknown indication
     Route: 065

REACTIONS (14)
  - Pneumonia aspiration [Unknown]
  - Unresponsive to stimuli [Recovered/Resolved]
  - Hypotonia [Unknown]
  - Bradypnoea [Unknown]
  - Mucosal dryness [Unknown]
  - Cyanosis [Unknown]
  - Injection site mass [Unknown]
  - Injection site abscess [Unknown]
  - Dehydration [Unknown]
  - Bradycardia [Unknown]
  - Hypotension [Unknown]
  - Hypoxia [Unknown]
  - Miosis [Unknown]
  - Overdose [Unknown]
